FAERS Safety Report 14985330 (Version 1)
Quarter: 2018Q2

REPORT INFORMATION
  Report Type: Spontaneous
  Country: US (occurrence: US)
  Receive Date: 20180607
  Receipt Date: 20180607
  Transmission Date: 20180711
  Serious: No
  Sender: FDA-Public Use
  Company Number: US-GALDERMA-US18008066

PATIENT
  Age: 30 Year
  Sex: Female

DRUGS (6)
  1. PROACTIV MD DEEP CLEANSING FACE WASH [Concomitant]
     Active Substance: COSMETICS
     Indication: ACNE
     Route: 061
     Dates: start: 20171108, end: 20171113
  2. PROACTIV MD BALANCING TONER [Concomitant]
     Active Substance: COSMETICS
     Indication: ACNE
     Route: 061
     Dates: start: 20171108, end: 20171113
  3. PROACTIV MD ADAPALENE ACNE TREATMENT [Suspect]
     Active Substance: ADAPALENE
     Indication: ACNE
     Dosage: 0.1%
     Route: 061
     Dates: start: 20171108, end: 20171111
  4. PROACTIV EXTRA STRENGTH FORMULA TONER [Concomitant]
     Active Substance: SALICYLIC ACID
     Indication: ACNE
     Route: 061
     Dates: start: 20171108, end: 20171113
  5. PROACTIV EXTRA STRENGTH FORMULA CLEANSER [Concomitant]
     Active Substance: BENZOYL PEROXIDE
     Indication: ACNE
     Route: 061
     Dates: start: 20171108, end: 20171113
  6. PROACTIV EXTRA STRENGTH FORMULA TREATMENT [Concomitant]
     Indication: ACNE
     Route: 061
     Dates: start: 20171108, end: 20171113

REACTIONS (7)
  - Acne [Recovered/Resolved]
  - Skin irritation [Recovered/Resolved]
  - Tooth extraction [Recovered/Resolved]
  - Skin exfoliation [Recovered/Resolved]
  - Dry skin [Recovered/Resolved]
  - Pain of skin [Recovered/Resolved]
  - Swelling face [Recovered/Resolved]

NARRATIVE: CASE EVENT DATE: 20171111
